FAERS Safety Report 4597894-6 (Version None)
Quarter: 2005Q1

REPORT INFORMATION
  Report Type: 
  Country: None (occurrence: None)
  Receive Date: 20050125
  Receipt Date: 20040915
  Transmission Date: 20050727
  Serious: No
  Sender: FDA-Public Use
  Company Number: USA040978068

PATIENT
  Age: 40 Year
  Sex: Female
  Weight: 45 kg

DRUGS (6)
  1. FORTEO [Suspect]
     Indication: OSTEOPOROSIS
     Dosage: 20 UG DAY
     Dates: start: 20040515
  2. PHENOBARBITAL [Concomitant]
  3. DEPAKOTE [Concomitant]
  4. TEGRETAL (CARBAMAZEPINE RIVOPHARM) [Concomitant]
  5. PANCREASE (PANCRELIPASE) [Concomitant]
  6. PRILOSEC (OMEPRAZOLE RATIOPHARM) [Concomitant]

REACTIONS (5)
  - INCISION SITE COMPLICATION [None]
  - INCISIONAL DRAINAGE [None]
  - INJECTION SITE ERYTHEMA [None]
  - NEPHROLITHIASIS [None]
  - PROCEDURAL SITE REACTION [None]
